FAERS Safety Report 20976713 (Version 3)
Quarter: 2022Q2

REPORT INFORMATION
  Report Type: Spontaneous
  Country: US (occurrence: US)
  Receive Date: 20220617
  Receipt Date: 20220629
  Transmission Date: 20220720
  Serious: No
  Sender: FDA-Public Use
  Company Number: US-LUPIN PHARMACEUTICALS INC.-2022-08655

PATIENT
  Sex: Female

DRUGS (1)
  1. ALBUTEROL SULFATE [Suspect]
     Active Substance: ALBUTEROL SULFATE
     Indication: Bronchitis
     Dosage: 2 DOSAGE FORM, TID, EVERY 4 TO 6 HOURS
     Dates: start: 20220603

REACTIONS (4)
  - Circumstance or information capable of leading to device use error [Unknown]
  - Device malfunction [Unknown]
  - Therapeutic product ineffective [Unknown]
  - Off label use [Unknown]
